FAERS Safety Report 26063839 (Version 1)
Quarter: 2025Q4

REPORT INFORMATION
  Report Type: Spontaneous
  Country: PH (occurrence: PH)
  Receive Date: 20251119
  Receipt Date: 20251119
  Transmission Date: 20260118
  Serious: Yes (Death)
  Sender: ASTELLAS
  Company Number: PH-ASTELLAS-2025-AER-064250

PATIENT
  Age: 66 Year
  Sex: Male

DRUGS (1)
  1. XTANDI [Suspect]
     Active Substance: ENZALUTAMIDE
     Indication: Prostate cancer
     Route: 065

REACTIONS (1)
  - Death [Fatal]
